FAERS Safety Report 7624659-0 (Version None)
Quarter: 2011Q3

REPORT INFORMATION
  Report Type: 
  Country: None (occurrence: None)
  Receive Date: 20110720
  Receipt Date: 20110708
  Transmission Date: 20111222
  Serious: Yes (Other)
  Sender: FDA-Public Use
  Company Number: US-GENZYME-CART-1000068

PATIENT

DRUGS (3)
  1. CARTICEL [Suspect]
     Indication: OSTEOCHONDROSIS
     Dosage: UNK
     Dates: start: 19990614, end: 19990614
  2. IBUPROFEN [Concomitant]
     Indication: ARTHRALGIA
  3. TYLENOL-500 [Concomitant]
     Indication: ARTHRALGIA

REACTIONS (4)
  - OSTEOCHONDROSIS [None]
  - ARTHRALGIA [None]
  - JOINT RANGE OF MOTION DECREASED [None]
  - MENISCUS LESION [None]
